FAERS Safety Report 5579982-0 (Version None)
Quarter: 2007Q4

REPORT INFORMATION
  Report Type: 
  Country: None (occurrence: None)
  Receive Date: 20071231
  Receipt Date: 20071231
  Transmission Date: 20080405
  Serious: Yes (Other)
  Sender: FDA-Public Use
  Company Number: None

PATIENT
  Age: 43 Year
  Sex: Female
  Weight: 65.7716 kg

DRUGS (2)
  1. LEXAPRO [Suspect]
     Indication: BLOOD CHOLESTEROL
     Dosage: 20 MG 1 DAILY PO ONCE
     Route: 048
     Dates: start: 20071228, end: 20071228
  2. LIPITOR [Suspect]

REACTIONS (14)
  - CHILLS [None]
  - COLD SWEAT [None]
  - DIARRHOEA [None]
  - DIZZINESS [None]
  - DRUG DISPENSING ERROR [None]
  - DRUG INTERACTION [None]
  - HEADACHE [None]
  - MALAISE [None]
  - MEDICATION ERROR [None]
  - NAUSEA [None]
  - TREMOR [None]
  - VIRAL INFECTION [None]
  - VOMITING [None]
  - WRONG DRUG ADMINISTERED [None]
